FAERS Safety Report 6509995-3 (Version None)
Quarter: 2009Q4

REPORT INFORMATION
  Report Type: 
  Country: None (occurrence: None)
  Receive Date: 20091222
  Receipt Date: 20081230
  Transmission Date: 20100525
  Serious: No
  Sender: FDA-Public Use
  Company Number: US-ABBOTT-09P-163-0495613-00

PATIENT
  Sex: Female
  Weight: 117.13 kg

DRUGS (3)
  1. GENERIC CEFDINIR [Suspect]
     Indication: LYME DISEASE
     Dates: start: 20080301, end: 20081201
  2. BIAXIN [Concomitant]
     Indication: LYME DISEASE
     Dates: start: 19980101
  3. OMNICEF [Concomitant]
     Indication: LYME DISEASE
     Dates: start: 19980101

REACTIONS (8)
  - BALANCE DISORDER [None]
  - BLOOD URINE [None]
  - DIZZINESS [None]
  - ENDOMETRIOSIS [None]
  - GENERAL PHYSICAL HEALTH DETERIORATION [None]
  - HAEMORRHOIDS [None]
  - NEPHROLITHIASIS [None]
  - PAIN [None]
